FAERS Safety Report 26143050 (Version 1)
Quarter: 2025Q4

REPORT INFORMATION
  Report Type: Spontaneous
  Country: EU (occurrence: EU)
  Receive Date: 20251211
  Receipt Date: 20251211
  Transmission Date: 20260118
  Serious: No
  Sender: IPSEN BIOPHARMACEUTICALS, INC.
  Company Number: EU-IPSEN Group, Research and Development-2025-29945

PATIENT

DRUGS (2)
  1. BYLVAY [Suspect]
     Active Substance: ODEVIXIBAT
     Indication: Alagille syndrome
  2. BYLVAY [Suspect]
     Active Substance: ODEVIXIBAT
     Indication: Product use in unapproved indication

REACTIONS (3)
  - Pruritus [Unknown]
  - Bile acids increased [Unknown]
  - Off label use [Unknown]
